FAERS Safety Report 7327483-1 (Version None)
Quarter: 2011Q1

REPORT INFORMATION
  Report Type: 
  Country: None (occurrence: None)
  Receive Date: 20110303
  Receipt Date: 20110222
  Transmission Date: 20110831
  Serious: Yes (Other)
  Sender: FDA-Public Use
  Company Number: FR-BIOGENIDEC-2011BI007011

PATIENT
  Age: 54 Year
  Sex: Female

DRUGS (4)
  1. CERIS [Concomitant]
     Indication: BLADDER DYSFUNCTION
  2. VITAMIN D [Concomitant]
  3. ANTALGIC [Concomitant]
  4. TYSABRI [Suspect]
     Indication: MULTIPLE SCLEROSIS
     Route: 042
     Dates: start: 20080624

REACTIONS (1)
  - NEOPLASM MALIGNANT [None]
